FAERS Safety Report 8838707 (Version 5)
Quarter: 2012Q4

REPORT INFORMATION
  Report Type: Report from Study
  Country: DE (occurrence: DE)
  Receive Date: 20121012
  Receipt Date: 20121106
  Transmission Date: 20130627
  Serious: Yes (Hospitalization)
  Sender: FDA-Public Use
  Company Number: DE-PFIZER INC-2012245647

PATIENT
  Age: 50 Year
  Sex: Female
  Weight: 71 kg

DRUGS (4)
  1. TORISEL [Suspect]
     Dosage: 25 mg, weekly
     Route: 042
     Dates: start: 20120820, end: 20121004
  2. IRINOTECAN HCL [Suspect]
     Dosage: 156 mg (absolute) on days 1, 8, 22, 29
     Route: 042
     Dates: start: 20120813
  3. LEVETIRACETAM [Concomitant]
     Indication: EPILEPSY
     Dosage: 1500 -0 - 1750 mg, daily
     Route: 048
     Dates: start: 2007
  4. LAMOTRIGINE [Concomitant]
     Indication: EPILEPSY
     Dosage: 100 mg, 2x/day
     Route: 048
     Dates: start: 2007

REACTIONS (2)
  - Confusional state [Recovered/Resolved]
  - Diarrhoea [Recovered/Resolved]
